FAERS Safety Report 9669151 (Version 1)
Quarter: 2013Q4

REPORT INFORMATION
  Report Type: Report from Study
  Country: US (occurrence: US)
  Receive Date: 20131105
  Receipt Date: 20131105
  Transmission Date: 20140711
  Serious: Yes (Other)
  Sender: FDA-Public Use
  Company Number: US-PFIZER INC-2013311646

PATIENT
  Age: 69 Year
  Sex: Male

DRUGS (15)
  1. DIFLUCAN [Suspect]
  2. DASATINIB [Suspect]
     Indication: GLIOBLASTOMA MULTIFORME
  3. TEMOZOLOMIDE [Suspect]
     Indication: GLIOBLASTOMA MULTIFORME
     Dosage: 75 MG/M2, 1X/DAY
     Dates: start: 20130710
  4. PLACEBO [Suspect]
     Indication: GLIOBLASTOMA MULTIFORME
  5. PRAVACHOL [Suspect]
  6. CLOTRIMAZOLE [Suspect]
  7. KEPPRA [Suspect]
  8. ZOFRAN [Suspect]
  9. OXYCODONE [Suspect]
  10. BACID [Concomitant]
  11. BACTRIM [Concomitant]
  12. COMPAZINE [Concomitant]
  13. DEXAMETHASONE [Concomitant]
  14. LOSARTAN [Concomitant]
  15. VITAMIN D [Concomitant]

REACTIONS (1)
  - Decreased appetite [Unknown]
